FAERS Safety Report 13544274 (Version 1)
Quarter: 2017Q2

REPORT INFORMATION
  Report Type: Spontaneous
  Country: US (occurrence: US)
  Receive Date: 20170512
  Receipt Date: 20170512
  Transmission Date: 20170830
  Serious: No
  Sender: FDA-Public Use
  Company Number: None

PATIENT
  Age: 56 Year
  Sex: Female
  Weight: 76.5 kg

DRUGS (14)
  1. DILTIAZEM. [Suspect]
     Active Substance: DILTIAZEM
     Indication: ATRIAL FLUTTER
     Dosage: ?          QUANTITY:30 CAPSULE(S);?
     Route: 048
     Dates: start: 20170505
  2. ONE-A-DAU 50+^B12 [Concomitant]
  3. MAGNESIUM [Concomitant]
     Active Substance: MAGNESIUM
  4. FLONASE [Concomitant]
     Active Substance: FLUTICASONE PROPIONATE
  5. D [Concomitant]
  6. POTASSIUM [Concomitant]
     Active Substance: POTASSIUM
  7. E [Concomitant]
  8. KRILL OIL [Concomitant]
     Active Substance: DIETARY SUPPLEMENT
  9. ESTROVEN [Concomitant]
     Active Substance: DIETARY SUPPLEMENT
  10. CALCIUM [Concomitant]
     Active Substance: CALCIUM
  11. ZINC. [Concomitant]
     Active Substance: ZINC
  12. BIOTIN [Concomitant]
     Active Substance: BIOTIN
  13. SUDAFED [Concomitant]
     Active Substance: PSEUDOEPHEDRINE HYDROCHLORIDE
  14. IRON [Concomitant]
     Active Substance: IRON

REACTIONS (2)
  - Constipation [None]
  - Muscle spasms [None]

NARRATIVE: CASE EVENT DATE: 20170508
